FAERS Safety Report 8600972-5 (Version None)
Quarter: 2012Q3

REPORT INFORMATION
  Report Type: 
  Country: None (occurrence: None)
  Receive Date: 20120817
  Receipt Date: 20120810
  Transmission Date: 20120928
  Serious: Yes (Life-Threatening)
  Sender: FDA-Public Use
  Company Number: JP-SANOFI-AVENTIS-2011SA073204

PATIENT
  Age: 69 Year
  Sex: Male
  Weight: 63 kg

DRUGS (11)
  1. LEUCOVORIN CALCIUM [Concomitant]
     Route: 041
     Dates: start: 20110805, end: 20110805
  2. OXALIPLATIN [Suspect]
     Indication: COLON CANCER
     Dosage: DOSE:85MG/M2
     Route: 041
     Dates: start: 20110721, end: 20110721
  3. FLUOROURACIL [Concomitant]
     Route: 041
     Dates: start: 20110805, end: 20110805
  4. LEUCOVORIN CALCIUM [Concomitant]
     Indication: COLON CANCER
     Route: 041
     Dates: start: 20110721, end: 20110805
  5. LANSOPRAZOLE [Concomitant]
     Indication: PEPTIC ULCER
     Route: 048
     Dates: end: 20110808
  6. FLUOROURACIL [Concomitant]
     Indication: COLON CANCER
     Route: 040
     Dates: start: 20110721, end: 20110805
  7. FLUOROURACIL [Concomitant]
     Route: 041
     Dates: start: 20110805, end: 20110805
  8. FLUOROURACIL [Concomitant]
     Route: 041
     Dates: start: 20110721, end: 20110805
  9. NITROGLYCERIN [Concomitant]
     Route: 060
     Dates: start: 20110722
  10. OXALIPLATIN [Suspect]
     Dosage: DOSE:85MG/M2
     Route: 041
     Dates: start: 20110805, end: 20110805
  11. RED BLOOD CELLS, CONCENTRATED [Concomitant]
     Route: 041
     Dates: start: 20110805, end: 20110805

REACTIONS (2)
  - ANGINA PECTORIS [None]
  - VENTRICULAR FIBRILLATION [None]
